FAERS Safety Report 21719325 (Version 1)
Quarter: 2022Q4

REPORT INFORMATION
  Report Type: Report from Study
  Country: US (occurrence: US)
  Receive Date: 20221213
  Receipt Date: 20221213
  Transmission Date: 20230113
  Serious: No
  Sender: FDA-Public Use
  Company Number: US-ABBVIE-4213056

PATIENT
  Sex: Female

DRUGS (1)
  1. RINVOQ [Suspect]
     Active Substance: UPADACITINIB
     Indication: Product used for unknown indication
     Route: 048

REACTIONS (7)
  - Urinary tract infection [Unknown]
  - Urine flow decreased [Unknown]
  - Oedema blister [Unknown]
  - Pollakiuria [Unknown]
  - Gait disturbance [Unknown]
  - Dysuria [Unknown]
  - Pruritus [Unknown]
